FAERS Safety Report 9070664 (Version 1)
Quarter: 2013Q1

REPORT INFORMATION
  Report Type: Report from Study
  Country: BR (occurrence: BR)
  Receive Date: 20130129
  Receipt Date: 20130129
  Transmission Date: 20140127
  Serious: Yes (Hospitalization, Other)
  Sender: FDA-Public Use
  Company Number: BR-US-EMD SERONO, INC.-7189533

PATIENT
  Age: 56 None
  Sex: Female

DRUGS (3)
  1. REBIF [Suspect]
     Indication: SECONDARY PROGRESSIVE MULTIPLE SCLEROSIS
     Dates: start: 20030501
  2. LOSARTAN [Concomitant]
     Indication: PRODUCT USED FOR UNKNOWN INDICATION
  3. OMEPRAZOLE [Concomitant]
     Indication: PRODUCT USED FOR UNKNOWN INDICATION

REACTIONS (8)
  - Atrial fibrillation [Unknown]
  - Pituitary tumour benign [Unknown]
  - Palpitations [Unknown]
  - Anxiety [Unknown]
  - Paraesthesia [Unknown]
  - Vision blurred [Unknown]
  - Balance disorder [Unknown]
  - Gait disturbance [Recovering/Resolving]
